FAERS Safety Report 18595673 (Version 2)
Quarter: 2020Q4

REPORT INFORMATION
  Report Type: Spontaneous
  Country: US (occurrence: US)
  Receive Date: 20201209
  Receipt Date: 20201218
  Transmission Date: 20210114
  Serious: No
  Sender: FDA-Public Use
  Company Number: US-PFIZER INC-2020483801

PATIENT
  Age: 1 Year
  Sex: Male

DRUGS (1)
  1. EUCRISA [Suspect]
     Active Substance: CRISABOROLE
     Dosage: DIME SIZE AMOUNT
     Route: 061

REACTIONS (3)
  - Erythema [Unknown]
  - Application site pain [Unknown]
  - Scab [Unknown]

NARRATIVE: CASE EVENT DATE: 20201202
